FAERS Safety Report 7967818-X (Version None)
Quarter: 2011Q4

REPORT INFORMATION
  Report Type: 
  Country: None (occurrence: None)
  Receive Date: 20111207
  Receipt Date: 20111122
  Transmission Date: 20120403
  Serious: Yes (Other)
  Sender: FDA-Public Use
  Company Number: AXC-2011-000493

PATIENT

DRUGS (1)
  1. URSODEOXYCHOLIC ACID (URSODEOXYCHOLIC ACID) TABLET, 50MG [Suspect]
     Indication: PRODUCT USED FOR UNKNOWN INDICATION
     Dosage: ORAL
     Route: 048

REACTIONS (1)
  - EOSINOPHILIC PNEUMONIA [None]
